FAERS Safety Report 23866279 (Version 3)
Quarter: 2024Q2

REPORT INFORMATION
  Report Type: Spontaneous
  Country: DE (occurrence: DE)
  Receive Date: 20240517
  Receipt Date: 20240624
  Transmission Date: 20240716
  Serious: Yes (Hospitalization, Other)
  Sender: FDA-Public Use
  Company Number: DE-SAMSUNG BIOEPIS-SB-2023-34297

PATIENT
  Age: 67 Year
  Sex: Female
  Weight: 45 kg

DRUGS (17)
  1. DOCETAXEL [Suspect]
     Active Substance: DOCETAXEL\DOCETAXEL ANHYDROUS
     Indication: Oesophageal adenocarcinoma
     Dosage: 50 MILLIGRAM/SQ. METER(69 MG)
     Route: 042
     Dates: start: 20231208, end: 20231208
  2. DOCETAXEL [Suspect]
     Active Substance: DOCETAXEL\DOCETAXEL ANHYDROUS
     Dosage: 53 MILLIGRAM
     Route: 065
     Dates: start: 20240110
  3. DOCETAXEL [Suspect]
     Active Substance: DOCETAXEL\DOCETAXEL ANHYDROUS
     Dosage: 51 MILLIGRAM (50MG/M2, IV, D1/D15/D29 AND D43 PRE AN POST OP)
     Route: 048
     Dates: start: 20231228, end: 20240524
  4. LEUCOVORIN [Suspect]
     Active Substance: LEUCOVORIN\LEUCOVORIN CALCIUM
     Indication: Oesophageal adenocarcinoma
     Dosage: 200 MILLIGRAM/SQ. METER(276 MG)
     Route: 042
     Dates: start: 20231208, end: 20231208
  5. LEUCOVORIN [Suspect]
     Active Substance: LEUCOVORIN\LEUCOVORIN CALCIUM
     Dosage: 280 MILLIGRAM
     Route: 065
     Dates: start: 20240110
  6. OXALIPLATIN [Suspect]
     Active Substance: OXALIPLATIN
     Indication: Oesophageal adenocarcinoma
     Dosage: 85 MILLIGRAM/SQ. METER(117 MG)
     Route: 042
     Dates: start: 20231208, end: 20231208
  7. OXALIPLATIN [Suspect]
     Active Substance: OXALIPLATIN
     Dosage: 89 MILLIGRAM
     Route: 065
     Dates: start: 20240110
  8. OXALIPLATIN [Suspect]
     Active Substance: OXALIPLATIN
     Dosage: 87 MILLIGRAM/SQ. METER (85MG/M2; IV, D1/D15/D29 AND D43 PRE AND POST OP)
     Route: 042
     Dates: start: 20231208, end: 20231208
  9. FLUOROURACIL [Suspect]
     Active Substance: FLUOROURACIL
     Indication: Oesophageal adenocarcinoma
     Dosage: 2600 MILLIGRAM/SQ. METER(3588 MG)
     Route: 042
     Dates: start: 20231208, end: 20231208
  10. FLUOROURACIL [Suspect]
     Active Substance: FLUOROURACIL
     Dosage: 2730 MILLIGRAM
     Route: 065
     Dates: start: 20240110
  11. ONTRUZANT [Suspect]
     Active Substance: TRASTUZUMAB-DTTB
     Indication: Oesophageal adenocarcinoma
     Dosage: 8 MILLIGRAM/KILOGRAM(D1 344 MILLIGRAM)
     Route: 042
     Dates: start: 20231208
  12. ONTRUZANT [Suspect]
     Active Substance: TRASTUZUMAB-DTTB
     Dosage: 332 MILLIGRAM/KILOGRAM (D1; 8MG/KG, IV, 6MG/KG IV D22/D43 PRE AND POST OP, AFTERWARDS 6MG/KG IV D1 Q
     Route: 042
     Dates: start: 20231224
  13. PEMBROLIZUMAB [Suspect]
     Active Substance: PEMBROLIZUMAB
     Indication: Oesophageal adenocarcinoma
     Dosage: 200 MILLIGRAM (FLAT DOSE)
     Route: 042
     Dates: start: 20231208
  14. AMLODIPINE BESYLATE [Concomitant]
     Active Substance: AMLODIPINE BESYLATE
     Indication: Product used for unknown indication
     Dosage: 5 MILLIGRAM, ONCE A DAY
     Route: 065
  15. ASPIRIN [Concomitant]
     Active Substance: ASPIRIN
     Indication: Product used for unknown indication
     Dosage: 100 MILLIGRAM, ONCE A DAY
     Route: 065
  16. HYDROCHLOROTHIAZIDE [Concomitant]
     Active Substance: HYDROCHLOROTHIAZIDE
     Indication: Product used for unknown indication
     Dosage: 25 MILLIGRAM, ONCE A DAY
     Route: 065
  17. RAMIPRIL [Concomitant]
     Active Substance: RAMIPRIL
     Indication: Product used for unknown indication
     Dosage: 5 MILLIGRAM, ONCE A DAY
     Route: 065

REACTIONS (10)
  - Diarrhoea [Recovered/Resolved]
  - Pyrexia [Recovered/Resolved]
  - Chills [Recovered/Resolved]
  - Prerenal failure [Unknown]
  - COVID-19 [Recovered/Resolved]
  - Exposure to SARS-CoV-2 [Unknown]
  - Immune-mediated adverse reaction [Unknown]
  - Product use in unapproved indication [Unknown]
  - Inflammatory marker increased [Unknown]
  - Toxicity to various agents [Unknown]

NARRATIVE: CASE EVENT DATE: 20231218
